FAERS Safety Report 9994876 (Version 1)
Quarter: 2014Q1

REPORT INFORMATION
  Report Type: Report from Study
  Country: FR (occurrence: FR)
  Receive Date: 20140311
  Receipt Date: 20140311
  Transmission Date: 20141002
  Serious: Yes (Hospitalization)
  Sender: FDA-Public Use
  Company Number: PHHY2014FR028320

PATIENT
  Age: 69 Year
  Sex: Female

DRUGS (3)
  1. NEORAL [Suspect]
     Indication: PROPHYLAXIS AGAINST TRANSPLANT REJECTION
     Dosage: 170 MG, UNK
     Route: 048
     Dates: start: 20121023
  2. CORTANCYL [Suspect]
     Indication: PROPHYLAXIS AGAINST TRANSPLANT REJECTION
     Dosage: 5 MG, UNK
     Route: 048
     Dates: start: 20121024
  3. CELLCEPT [Suspect]
     Indication: PROPHYLAXIS AGAINST TRANSPLANT REJECTION
     Dosage: 1000 MG, UNK
     Route: 048
     Dates: start: 20121023

REACTIONS (3)
  - Renal cyst [Recovering/Resolving]
  - Tubulointerstitial nephritis [Unknown]
  - Clear cell renal cell carcinoma [Unknown]
